FAERS Safety Report 4499407-6 (Version None)
Quarter: 2004Q4

REPORT INFORMATION
  Report Type: 
  Country: None (occurrence: None)
  Receive Date: 20041111
  Receipt Date: 20041105
  Transmission Date: 20050328
  Serious: Yes (Life-Threatening, Hospitalization)
  Sender: FDA-Public Use
  Company Number: US-MERCK-0411USA01005

PATIENT
  Age: 55 Year
  Sex: Male

DRUGS (9)
  1. VIOXX [Suspect]
     Indication: RHEUMATOID ARTHRITIS
     Route: 048
     Dates: start: 20030101
  2. PROTONIX [Concomitant]
     Route: 065
  3. DEFLAZACORT [Concomitant]
     Route: 065
  4. COMBIVENT [Concomitant]
     Route: 065
  5. ENALAPRIL MALEATE [Concomitant]
     Route: 065
  6. HYDROCHLOROTHIAZIDE [Concomitant]
     Route: 065
  7. DIOXONE [Concomitant]
     Route: 065
  8. VERAPAMIL HYDROCHLORIDE [Concomitant]
     Route: 065
  9. ALBUTEROL [Concomitant]
     Route: 065

REACTIONS (8)
  - BLOOD PRESSURE FLUCTUATION [None]
  - CHRONIC OBSTRUCTIVE AIRWAYS DISEASE [None]
  - HEART RATE ABNORMAL [None]
  - HEART RATE INCREASED [None]
  - HEART RATE IRREGULAR [None]
  - HYPERTENSION [None]
  - HYPOTENSION [None]
  - SOMNOLENCE [None]
